FAERS Safety Report 13432885 (Version 2)
Quarter: 2017Q2

REPORT INFORMATION
  Report Type: Spontaneous
  Country: US (occurrence: US)
  Receive Date: 20170412
  Receipt Date: 20170421
  Transmission Date: 20170830
  Serious: Yes (Hospitalization, Other)
  Sender: FDA-Public Use
  Company Number: US-GLAXOSMITHKLINE-US2017GSK050377

PATIENT
  Age: 23 Year
  Sex: Male

DRUGS (1)
  1. NICODERM CQ [Suspect]
     Active Substance: NICOTINE
     Indication: SMOKING CESSATION THERAPY
     Dosage: UNK
     Route: 062

REACTIONS (9)
  - Phonophobia [Unknown]
  - Diplopia [Recovered/Resolved]
  - Drug withdrawal syndrome [Unknown]
  - Nausea [Unknown]
  - Disturbance in attention [Unknown]
  - Migraine [Recovered/Resolved]
  - Vomiting [Unknown]
  - Hyperhidrosis [Unknown]
  - Performance status decreased [Unknown]
